FAERS Safety Report 8172748 (Version 5)
Quarter: 2014Q1

REPORT INFORMATION
  Report Type: Spontaneous
  Country: US (occurrence: US)
  Receive Date: 20111007
  Receipt Date: 20140110
  Transmission Date: 20141002
  Serious: Yes (Hospitalization)
  Sender: FDA-Public Use
  Company Number: US-GLAXOSMITHKLINE-A0835754A

PATIENT
  Age: 41 Year
  Sex: Female
  Weight: 195.5 kg

DRUGS (1)
  1. AVANDIA [Suspect]
     Indication: TYPE 2 DIABETES MELLITUS
     Dosage: 4MG PER DAY
     Route: 048
     Dates: start: 200106, end: 200412

REACTIONS (8)
  - Right ventricular failure [Not Recovered/Not Resolved]
  - Acute respiratory failure [Unknown]
  - Cardiac disorder [Unknown]
  - Cor pulmonale [Unknown]
  - Fluid overload [Unknown]
  - Oedema [Unknown]
  - Lung disorder [Unknown]
  - Respiratory disorder [Unknown]
